FAERS Safety Report 9798213 (Version 1)
Quarter: 2014Q1

REPORT INFORMATION
  Report Type: Spontaneous
  Country: US (occurrence: US)
  Receive Date: 20140106
  Receipt Date: 20140106
  Transmission Date: 20141002
  Serious: Yes (Congenital Anomaly, Other)
  Sender: FDA-Public Use
  Company Number: US-PFIZER INC-2014000781

PATIENT
  Sex: 0

DRUGS (3)
  1. ZOLOFT [Suspect]
     Indication: ANXIETY
     Dosage: UNK
     Route: 064
  2. ZOLOFT [Suspect]
     Indication: DEPRESSION
  3. ZOLOFT [Suspect]
     Indication: AFFECTIVE DISORDER

REACTIONS (8)
  - Maternal exposure during pregnancy [Unknown]
  - Ventricular septal defect [Unknown]
  - Transposition of the great vessels [Unknown]
  - Patent ductus arteriosus [Unknown]
  - Double outlet right ventricle [Unknown]
  - Coarctation of the aorta [Unknown]
  - Atrial septal defect [Unknown]
  - Heart valve stenosis [Unknown]
